FAERS Safety Report 4336183-1 (Version None)
Quarter: 2004Q2

REPORT INFORMATION
  Report Type: 
  Country: None (occurrence: None)
  Receive Date: 20040407
  Receipt Date: 20040329
  Transmission Date: 20050107
  Serious: Yes (Disabling)
  Sender: FDA-Public Use
  Company Number: HQWYE378902DEC03

PATIENT
  Age: 76 Year
  Sex: Male

DRUGS (8)
  1. PROPRANOLOL HCL [Suspect]
     Indication: ESSENTIAL TREMOR
     Dosage: 20 MG 1X PER 1 DAY ORAL
     Route: 048
     Dates: start: 20030815
  2. ALDACTAZIDE [Suspect]
     Dosage: 1 DF DAILY ORAL
     Route: 048
  3. AZATHIOPRINE [Suspect]
     Indication: AUTOIMMUNE DISORDER
     Dosage: 200 MG 1X PER 1 DAY ORAL
     Route: 048
     Dates: start: 20030115
  4. AZATHIOPRINE [Suspect]
     Indication: LUNG DISORDER
     Dosage: 200 MG 1X PER 1 DAY ORAL
     Route: 048
     Dates: start: 20030115
  5. PREDNISONE TAB [Suspect]
     Indication: AUTOIMMUNE DISORDER
     Dosage: 40 MG 1X PER 1 DAY ORAL
     Route: 048
     Dates: start: 20030115
  6. PREDNISONE TAB [Suspect]
     Indication: LUNG DISORDER
     Dosage: 40 MG 1X PER 1 DAY ORAL
     Route: 048
     Dates: start: 20030115
  7. NOVONORM (REPAGLINIDE) [Suspect]
     Indication: DIABETES MELLITUS
     Dosage: 9 MG 1X PER 1 DAY ORAL; SEE IMAGE
     Route: 048
     Dates: start: 20030615, end: 20030101
  8. NOVONORM (REPAGLINIDE) [Suspect]
     Indication: DIABETES MELLITUS
     Dosage: 9 MG 1X PER 1 DAY ORAL; SEE IMAGE
     Route: 048
     Dates: start: 20030101

REACTIONS (9)
  - ATAXIA [None]
  - AUTOIMMUNE DISORDER [None]
  - DIABETIC NEUROPATHY [None]
  - GAIT DISTURBANCE [None]
  - GLYCOSYLATED HAEMOGLOBIN INCREASED [None]
  - PAIN IN EXTREMITY [None]
  - PERIPHERAL MOTOR NEUROPATHY [None]
  - PERIPHERAL SENSORY NEUROPATHY [None]
  - POLYNEUROPATHY [None]
